FAERS Safety Report 18073637 (Version 1)
Quarter: 2020Q3

REPORT INFORMATION
  Report Type: Spontaneous
  Country: GB (occurrence: GB)
  Receive Date: 20200727
  Receipt Date: 20200727
  Transmission Date: 20201103
  Serious: Yes (Other)
  Sender: FDA-Public Use
  Company Number: GB-MYLANLABS-2020M1066307

PATIENT
  Age: 33 Year
  Sex: Female
  Weight: 76.2 kg

DRUGS (2)
  1. SERTRALINE [Concomitant]
     Active Substance: SERTRALINE HYDROCHLORIDE
     Dosage: 100 MILLIGRAM
  2. MIRTAZAPINE. [Suspect]
     Active Substance: MIRTAZAPINE
     Indication: DEPRESSION
     Dosage: 30 MILLIGRAM
     Route: 048
     Dates: start: 20200608, end: 20200706

REACTIONS (4)
  - Rash [Unknown]
  - Burning sensation [Unknown]
  - Erythema [Unknown]
  - Skin discolouration [Unknown]

NARRATIVE: CASE EVENT DATE: 20200706
